FAERS Safety Report 13544361 (Version 1)
Quarter: 2017Q2

REPORT INFORMATION
  Report Type: Spontaneous
  Country: DE (occurrence: DE)
  Receive Date: 20170515
  Receipt Date: 20170515
  Transmission Date: 20170830
  Serious: Yes (Hospitalization)
  Sender: FDA-Public Use
  Company Number: DE-TORRENT-00006500

PATIENT
  Age: 23 Year
  Sex: Female
  Weight: 60 kg

DRUGS (6)
  1. VENLAFAXINE HYDROCHLORIDE. [Suspect]
     Active Substance: VENLAFAXINE HYDROCHLORIDE
  2. LORAZEPAM. [Concomitant]
     Active Substance: LORAZEPAM
  3. MONTELUKAST [Concomitant]
     Active Substance: MONTELUKAST SODIUM
  4. MIRTAZAPINE. [Concomitant]
     Active Substance: MIRTAZAPINE
  5. CHLORPROTHIXENE [Concomitant]
     Active Substance: CHLORPROTHIXENE
  6. SALMETEROL XINAFOATE [Concomitant]
     Active Substance: SALMETEROL XINAFOATE

REACTIONS (3)
  - Vomiting [Recovered/Resolved]
  - Hypophagia [Recovered/Resolved]
  - Withdrawal syndrome [Recovered/Resolved]

NARRATIVE: CASE EVENT DATE: 20150813
